FAERS Safety Report 15976472 (Version 1)
Quarter: 2019Q1

REPORT INFORMATION
  Report Type: Report from Study
  Country: US (occurrence: US)
  Receive Date: 20190218
  Receipt Date: 20190218
  Transmission Date: 20190418
  Serious: Yes (Death, Other)
  Sender: FDA-Public Use
  Company Number: US-GILEAD-2019-0391468

PATIENT
  Age: 71 Year
  Sex: Male

DRUGS (3)
  1. REMODULIN [Concomitant]
     Active Substance: TREPROSTINIL
  2. OXYGEN. [Concomitant]
     Active Substance: OXYGEN
  3. AMBRISENTAN [Suspect]
     Active Substance: AMBRISENTAN
     Indication: PRODUCT USED FOR UNKNOWN INDICATION
     Dosage: 10 MG, QD
     Route: 065
     Dates: start: 20190114

REACTIONS (2)
  - Death [Fatal]
  - Fall [Unknown]

NARRATIVE: CASE EVENT DATE: 20190213
